FAERS Safety Report 19667417 (Version 3)
Quarter: 2024Q2

REPORT INFORMATION
  Report Type: Report from Study
  Country: US (occurrence: US)
  Receive Date: 20210806
  Receipt Date: 20240410
  Transmission Date: 20240715
  Serious: Yes (Other)
  Sender: FDA-Public Use
  Company Number: US-AURINIA PHARMACEUTICALS INC.-AUR-000188

PATIENT
  Age: 24 Year
  Sex: Male

DRUGS (8)
  1. LUPKYNIS [Suspect]
     Active Substance: VOCLOSPORIN
     Indication: Lupus nephritis
     Dosage: 23.7 MILLIGRAM, BID
     Route: 048
     Dates: start: 20210609
  2. LUPKYNIS [Suspect]
     Active Substance: VOCLOSPORIN
     Dosage: 23.7 MILLIGRAM, BID
     Route: 048
     Dates: start: 20210609
  3. PREDNISONE [Concomitant]
     Active Substance: PREDNISONE
     Indication: Product used for unknown indication
     Dosage: 10 MILLIGRAM, QD
  4. MYFORTIC [Concomitant]
     Active Substance: MYCOPHENOLATE SODIUM
     Indication: Product used for unknown indication
     Dosage: 180 MILLIGRAM, BID
  5. PROGRAF [Concomitant]
     Active Substance: TACROLIMUS
  6. LISINOPRIL [Concomitant]
     Active Substance: LISINOPRIL
     Indication: Product used for unknown indication
     Dosage: 40 MILLIGRAM
  7. ALUMINUM HYDROXIDE\MAGNESIUM CARBONATE [Concomitant]
     Active Substance: ALUMINUM HYDROXIDE\MAGNESIUM CARBONATE
     Indication: Product used for unknown indication
     Dosage: 20 MILLIGRAM, QD
  8. LISINOPRIL [Concomitant]
     Active Substance: LISINOPRIL
     Indication: Product used for unknown indication
     Dosage: 20 MILLIGRAM, QD

REACTIONS (19)
  - Blood creatinine increased [Unknown]
  - Urine protein/creatinine ratio increased [Unknown]
  - Proteinuria [Unknown]
  - Glomerular filtration rate decreased [Unknown]
  - Chronic kidney disease [Unknown]
  - Abdominal discomfort [Not Recovered/Not Resolved]
  - Abdominal distension [Not Recovered/Not Resolved]
  - Constipation [Not Recovered/Not Resolved]
  - Metabolic acidosis [Unknown]
  - Blood bicarbonate decreased [Unknown]
  - Double stranded DNA antibody positive [Unknown]
  - Urine abnormality [Unknown]
  - Constipation [Unknown]
  - Weight fluctuation [Unknown]
  - Muscle spasms [Unknown]
  - Diarrhoea [Recovered/Resolved]
  - Fatigue [Unknown]
  - Insurance issue [Unknown]
  - Therapy interrupted [Unknown]

NARRATIVE: CASE EVENT DATE: 20210609
